FAERS Safety Report 9813910 (Version 1)
Quarter: 2014Q1

REPORT INFORMATION
  Report Type: Spontaneous
  Country: FR (occurrence: FR)
  Receive Date: 20140113
  Receipt Date: 20140113
  Transmission Date: 20141002
  Serious: Yes (Death, Other)
  Sender: FDA-Public Use
  Company Number: FR-TEVA-454176ISR

PATIENT
  Age: 72 Year
  Sex: 0

DRUGS (4)
  1. FLUOROURACILE TEVA [Suspect]
     Indication: ADENOCARCINOMA
     Route: 042
     Dates: start: 20120215
  2. IRINOTECAN MYLAN [Suspect]
     Indication: ADENOCARCINOMA
     Route: 042
     Dates: start: 20120215
  3. AVASTIN [Suspect]
     Indication: ADENOCARCINOMA
     Route: 042
     Dates: start: 20120215
  4. GRANOCYTE [Concomitant]

REACTIONS (3)
  - Neutropenia [Recovered/Resolved]
  - Hepatic failure [Fatal]
  - Neoplasm progression [Fatal]
